FAERS Safety Report 5363526-2 (Version None)
Quarter: 2007Q2

REPORT INFORMATION
  Report Type: 
  Country: None (occurrence: None)
  Receive Date: 20070620
  Receipt Date: 20070301
  Transmission Date: 20071010
  Serious: No
  Sender: FDA-Public Use
  Company Number: US-BRISTOL-MYERS SQUIBB COMPANY-13702295

PATIENT
  Age: 65 Year
  Sex: Female

DRUGS (2)
  1. FOSINOPRIL SODIUM [Suspect]
  2. INDAPAMIDE [Suspect]

REACTIONS (3)
  - DIZZINESS [None]
  - FATIGUE [None]
  - MALAISE [None]
